FAERS Safety Report 15986451 (Version 5)
Quarter: 2019Q3

REPORT INFORMATION
  Report Type: Spontaneous
  Country: US (occurrence: US)
  Receive Date: 20190220
  Receipt Date: 20190717
  Transmission Date: 20191004
  Serious: Yes (Other)
  Sender: FDA-Public Use
  Company Number: US-GLAXOSMITHKLINE-US2019GSK030070

PATIENT
  Sex: Male
  Weight: 160 kg

DRUGS (1)
  1. PREVACID [Suspect]
     Active Substance: LANSOPRAZOLE
     Indication: PRODUCT USED FOR UNKNOWN INDICATION
     Dosage: UNK
     Route: 065

REACTIONS (11)
  - Chronic kidney disease [Unknown]
  - Ureteric obstruction [Unknown]
  - Renal failure [Not Recovered/Not Resolved]
  - Acute kidney injury [Not Recovered/Not Resolved]
  - Bladder dysfunction [Unknown]
  - Nephrogenic anaemia [Unknown]
  - Hydronephrosis [Unknown]
  - Urinary retention [Not Recovered/Not Resolved]
  - Obstructive nephropathy [Unknown]
  - Micturition urgency [Unknown]
  - Nocturia [Unknown]
